FAERS Safety Report 5518974-4 (Version None)
Quarter: 2007Q4

REPORT INFORMATION
  Report Type: 
  Country: None (occurrence: None)
  Receive Date: 20071116
  Receipt Date: 20071106
  Transmission Date: 20080405
  Serious: Yes (Other)
  Sender: FDA-Public Use
  Company Number: PHBS2007JP18698

PATIENT
  Sex: Female

DRUGS (1)
  1. RITALIN [Suspect]
     Indication: DEPRESSION
     Dosage: 40 MG/DAY
     Route: 048
     Dates: end: 20071001

REACTIONS (2)
  - ANXIETY [None]
  - SELF INJURIOUS BEHAVIOUR [None]
